FAERS Safety Report 13663823 (Version 2)
Quarter: 2018Q1

REPORT INFORMATION
  Report Type: Spontaneous
  Country: JP (occurrence: JP)
  Receive Date: 20170619
  Receipt Date: 20180104
  Transmission Date: 20180508
  Serious: Yes (Death, Hospitalization)
  Sender: FDA-Public Use
  Company Number: JP-AEGERION PHARMACEUTICAL, INC-AEGR002582

PATIENT

DRUGS (28)
  1. TRESIBA [Concomitant]
     Active Substance: INSULIN DEGLUDEC
     Dosage: 36 IU/DAY
     Dates: start: 20151124, end: 20151125
  2. TRESIBA [Concomitant]
     Active Substance: INSULIN DEGLUDEC
     Dosage: 18 IU/DAY
     Dates: start: 20151203, end: 20160106
  3. TRESIBA [Concomitant]
     Active Substance: INSULIN DEGLUDEC
     Dosage: 4 IU/DAY
     Dates: start: 20160714, end: 20160907
  4. BIO-THREE [Concomitant]
     Active Substance: HERBALS
     Indication: PRODUCT USED FOR UNKNOWN INDICATION
  5. NOVORAPID [Concomitant]
     Active Substance: INSULIN ASPART
     Dosage: 8 IU/DAY
     Dates: start: 20151202, end: 20160106
  6. PARIET [Concomitant]
     Active Substance: RABEPRAZOLE SODIUM
     Indication: PRODUCT USED FOR UNKNOWN INDICATION
  7. MAGNESIUM OXIDE. [Concomitant]
     Active Substance: MAGNESIUM OXIDE
     Indication: PRODUCT USED FOR UNKNOWN INDICATION
  8. SENNOSIDE [Concomitant]
     Active Substance: SENNOSIDES
     Indication: PRODUCT USED FOR UNKNOWN INDICATION
  9. TRESIBA [Concomitant]
     Active Substance: INSULIN DEGLUDEC
     Dosage: 16 IU/DAY
     Dates: start: 20160107, end: 20160302
  10. NOVORAPID [Concomitant]
     Active Substance: INSULIN ASPART
     Dosage: 10 IU/DAY
     Dates: start: 20151124, end: 20151125
  11. NOVORAPID [Concomitant]
     Active Substance: INSULIN ASPART
     Dosage: 8 IU/DAY
     Dates: start: 20151126, end: 20151128
  12. LEVOFLOXACIN HEMIHYDRATE [Concomitant]
     Active Substance: LEVOFLOXACIN
     Indication: PROPHYLAXIS
     Dosage: UNK
     Dates: end: 20161102
  13. METRELEPTIN SHIONOGI [Suspect]
     Active Substance: METRELEPTIN
     Indication: LIPOATROPHY
     Dosage: 1 MG, QD
     Route: 058
     Dates: start: 20151123, end: 20151125
  14. FLUCONAZOLE. [Concomitant]
     Active Substance: FLUCONAZOLE
     Indication: PROPHYLAXIS
  15. TRESIBA [Concomitant]
     Active Substance: INSULIN DEGLUDEC
     Dosage: 26 IU/DAY
     Dates: start: 20151126, end: 20151128
  16. TRESIBA [Concomitant]
     Active Substance: INSULIN DEGLUDEC
     Dosage: 16 IU/DAY
     Dates: start: 20151129, end: 20151202
  17. NOVORAPID [Concomitant]
     Active Substance: INSULIN ASPART
     Dosage: 6 IU/DAY
     Dates: start: 20151129, end: 20151201
  18. NOVORAPID [Concomitant]
     Active Substance: INSULIN ASPART
     Dosage: 2 IU/DAY
     Dates: start: 20160519, end: 20160713
  19. FEXOFENADINE HYDROCHLORIDE. [Concomitant]
     Active Substance: FEXOFENADINE HYDROCHLORIDE
     Indication: PRODUCT USED FOR UNKNOWN INDICATION
     Dosage: UNK
     Dates: start: 20160302, end: 20160308
  20. METRELEPTIN SHIONOGI [Suspect]
     Active Substance: METRELEPTIN
     Dosage: 3.5 MG, QD
     Route: 058
     Dates: start: 20151129, end: 20170603
  21. TRESIBA [Concomitant]
     Active Substance: INSULIN DEGLUDEC
     Indication: PRODUCT USED FOR UNKNOWN INDICATION
     Dosage: 46 IU/DAY
     Dates: end: 20151123
  22. TRESIBA [Concomitant]
     Active Substance: INSULIN DEGLUDEC
     Dosage: 12 IU/DAY
     Dates: start: 20160303, end: 20160518
  23. NOVORAPID [Concomitant]
     Active Substance: INSULIN ASPART
     Dosage: 4 IU/DAY
     Dates: start: 20160303, end: 20160518
  24. ETIZOLAM [Concomitant]
     Active Substance: ETIZOLAM
     Indication: PRODUCT USED FOR UNKNOWN INDICATION
  25. METRELEPTIN SHIONOGI [Suspect]
     Active Substance: METRELEPTIN
     Dosage: 2 MG, QD
     Route: 058
     Dates: start: 20151126, end: 20151128
  26. TRESIBA [Concomitant]
     Active Substance: INSULIN DEGLUDEC
     Dosage: 8 IU/DAY
     Dates: start: 20160519, end: 20160713
  27. NOVORAPID [Concomitant]
     Active Substance: INSULIN ASPART
     Indication: PRODUCT USED FOR UNKNOWN INDICATION
     Dosage: 14 IU/DAY
     Dates: end: 20151123
  28. NOVORAPID [Concomitant]
     Active Substance: INSULIN ASPART
     Dosage: 6 IU/DAY
     Dates: start: 20160107, end: 20160302

REACTIONS (2)
  - Pneumonia [Recovered/Resolved]
  - Myelodysplastic syndrome [Fatal]

NARRATIVE: CASE EVENT DATE: 20170310
